FAERS Safety Report 4741398-4 (Version None)
Quarter: 2005Q3

REPORT INFORMATION
  Report Type: 
  Country: None (occurrence: None)
  Receive Date: 20050808
  Receipt Date: 20050725
  Transmission Date: 20060218
  Serious: Yes (Other)
  Sender: FDA-Public Use
  Company Number: 2005105801

PATIENT
  Sex: Female
  Weight: 54.4316 kg

DRUGS (2)
  1. NICOTROL [Suspect]
     Indication: SMOKING CESSATION THERAPY
     Dosage: 1 (15 MG) PATCH DAILY, TRANSDERMAL
     Route: 062
     Dates: start: 20050601, end: 20050701
  2. OMEPRAZOLE [Concomitant]

REACTIONS (4)
  - BURNING SENSATION [None]
  - DEPRESSION [None]
  - HAEMOPTYSIS [None]
  - PHARYNGOLARYNGEAL PAIN [None]
